FAERS Safety Report 10795374 (Version 2)
Quarter: 2015Q1

REPORT INFORMATION
  Report Type: Spontaneous
  Country: US (occurrence: US)
  Receive Date: 20150214
  Receipt Date: 20150216
  Transmission Date: 20150721
  Serious: No
  Sender: FDA-Public Use
  Company Number: US-GLAXOSMITHKLINE-A1066473A

PATIENT

DRUGS (16)
  1. LAMICTAL [Concomitant]
     Active Substance: LAMOTRIGINE
  2. OMEPRAZOLE. [Concomitant]
     Active Substance: OMEPRAZOLE
  3. ALPRAZOLAM. [Concomitant]
     Active Substance: ALPRAZOLAM
  4. NAPROXEN. [Concomitant]
     Active Substance: NAPROXEN
  5. GABAPENTIN. [Concomitant]
     Active Substance: GABAPENTIN
  6. MELOXICAM. [Concomitant]
     Active Substance: MELOXICAM
  7. VOLTAREN [Concomitant]
     Active Substance: DICLOFENAC SODIUM
  8. ASPIRIN. [Concomitant]
     Active Substance: ASPIRIN
  9. FLEXERIL [Concomitant]
     Active Substance: CYCLOBENZAPRINE HYDROCHLORIDE
  10. ALLI [Suspect]
     Active Substance: ORLISTAT
     Indication: WEIGHT DECREASED
     Dates: start: 20140226, end: 20140228
  11. HYDROXYZINE [Concomitant]
     Active Substance: HYDROXYZINE\HYDROXYZINE HYDROCHLORIDE
  12. MULTIVITAMIN [Concomitant]
     Active Substance: VITAMINS
  13. FOLIC ACID. [Concomitant]
     Active Substance: FOLIC ACID
  14. ATENOLOL. [Interacting]
     Active Substance: ATENOLOL
  15. LEXAPRO [Concomitant]
     Active Substance: ESCITALOPRAM OXALATE
  16. BIOTIN [Concomitant]
     Active Substance: BIOTIN

REACTIONS (4)
  - Blood pressure increased [Recovered/Resolved]
  - Blood glucose increased [Unknown]
  - Dizziness [Unknown]
  - Drug interaction [Unknown]

NARRATIVE: CASE EVENT DATE: 20140226
